FAERS Safety Report 9681149 (Version 1)
Quarter: 2013Q4

REPORT INFORMATION
  Report Type: Spontaneous
  Country: US (occurrence: None)
  Receive Date: 20131108
  Receipt Date: 20131108
  Transmission Date: 20140711
  Serious: Yes (Disabling, Other)
  Sender: FDA-Public Use
  Company Number: None

PATIENT
  Age: 34 Year
  Sex: Female
  Weight: 50.8 kg

DRUGS (1)
  1. CITALOPRAM [Suspect]
     Indication: ANXIETY
     Dosage: 1/2 PILL ONCE DAILY
     Route: 048
     Dates: start: 20130911, end: 20131105

REACTIONS (16)
  - Abdominal pain upper [None]
  - Abdominal distension [None]
  - Nausea [None]
  - Emotional disorder [None]
  - Paraesthesia [None]
  - Weight decreased [None]
  - Mental disorder [None]
  - Crying [None]
  - Suicidal ideation [None]
  - Stress [None]
  - Dizziness [None]
  - Malaise [None]
  - Depression [None]
  - Retching [None]
  - Hypophagia [None]
  - Drug dose omission [None]
